FAERS Safety Report 4776556-6 (Version None)
Quarter: 2005Q3

REPORT INFORMATION
  Report Type: 
  Country: None (occurrence: None)
  Receive Date: 20050915
  Receipt Date: 20050902
  Transmission Date: 20060218
  Serious: Yes (Other)
  Sender: FDA-Public Use
  Company Number: 2005123877

PATIENT
  Age: 34 Year
  Sex: Female

DRUGS (3)
  1. FELDENE [Suspect]
     Indication: PHARYNGITIS
     Dosage: 40 MG (20 MG, 2 IN 1 D), ORAL
     Route: 048
     Dates: start: 20050830, end: 20050831
  2. OMEPRAZOLE [Concomitant]
  3. ALUMINUM HYDROXIDE AND MAGNESIUM TRISILICATE [Concomitant]

REACTIONS (6)
  - BLISTER [None]
  - DRY SKIN [None]
  - ERYTHEMA [None]
  - INAPPROPRIATE SCHEDULE OF DRUG ADMINISTRATION [None]
  - PRURITUS [None]
  - TREATMENT NONCOMPLIANCE [None]
